FAERS Safety Report 14253610 (Version 1)
Quarter: 2017Q4

REPORT INFORMATION
  Report Type: Spontaneous
  Country: US (occurrence: US)
  Receive Date: 20171205
  Receipt Date: 20171205
  Transmission Date: 20180321
  Serious: Yes (Other)
  Sender: FDA-Public Use
  Company Number: US-CHIESI USA INC.-US-2017CHI000191

PATIENT

DRUGS (3)
  1. CLOTRIMAZOL + BETAMETASONA [Concomitant]
     Indication: PRODUCT USED FOR UNKNOWN INDICATION
     Dosage: UNK
     Route: 065
  2. WAL DRYL [Concomitant]
     Indication: PRODUCT USED FOR UNKNOWN INDICATION
     Dosage: UNK
     Route: 065
  3. BETHKIS [Suspect]
     Active Substance: TOBRAMYCIN
     Indication: BACTERIAL INFECTION
     Dosage: 300 MG, BID
     Route: 055
     Dates: start: 20160919

REACTIONS (4)
  - Off label use [Not Recovered/Not Resolved]
  - Stoma site rash [Unknown]
  - Bronchospasm [Unknown]
  - Rash papular [Unknown]

NARRATIVE: CASE EVENT DATE: 201609
